FAERS Safety Report 13076347 (Version 1)
Quarter: 2016Q4

REPORT INFORMATION
  Report Type: Spontaneous
  Country: US (occurrence: US)
  Receive Date: 20161229
  Receipt Date: 20161229
  Transmission Date: 20170207
  Serious: Yes (Life-Threatening, Hospitalization)
  Sender: FDA-Public Use
  Company Number: None

PATIENT
  Age: 69 Year
  Sex: Male
  Weight: 87.7 kg

DRUGS (1)
  1. CHLORTHALIDONE. [Suspect]
     Active Substance: CHLORTHALIDONE
     Route: 048
     Dates: start: 20140815, end: 20160119

REACTIONS (2)
  - Acute kidney injury [None]
  - Hyponatraemia [None]

NARRATIVE: CASE EVENT DATE: 20160119
